FAERS Safety Report 9837799 (Version 1)
Quarter: 2013Q4

REPORT INFORMATION
  Report Type: Spontaneous
  Country: GB (occurrence: None)
  Receive Date: 20131203
  Receipt Date: 20131203
  Transmission Date: 20140711
  Serious: No
  Sender: FDA-Public Use
  Company Number: 2013GMK007300

PATIENT
  Age: 56 Year
  Sex: Male

DRUGS (10)
  1. MONTELUKAST [Suspect]
     Indication: PRODUCT USED FOR UNKNOWN INDICATION
     Route: 048
  2. AZITHROMYCIN (AZITHROMYCIN) [Concomitant]
  3. CARBAMAZEPINE (CARBAMAZEPINE) [Concomitant]
  4. FLUTICASONE (FLUTICASONE) [Concomitant]
  5. FOLIC ACID (FLIC ACID) [Concomitant]
  6. LORATADINE (LORATADINE) [Concomitant]
  7. PREGABALIN (PREGABALIN) [Concomitant]
  8. SERETIDE (FLUTICASONE PROPIONATE, SALMETEROL XINAFOATE) [Concomitant]
  9. TIOTROPIUM (TIOTROPIUM) [Concomitant]
  10. WARFARIN (WARFARIN) [Concomitant]

REACTIONS (1)
  - Allergic granulomatous angiitis [None]
